FAERS Safety Report 8163159-9 (Version None)
Quarter: 2012Q1

REPORT INFORMATION
  Report Type: 
  Country: None (occurrence: None)
  Receive Date: 20120224
  Receipt Date: 20110210
  Transmission Date: 20120608
  Serious: No
  Sender: FDA-Public Use
  Company Number: US-PFIZER INC-K201100172

PATIENT
  Age: 47 Year
  Sex: Female

DRUGS (21)
  1. ALREX [Concomitant]
     Dosage: UNK
  2. ANUSOL HC [Concomitant]
     Dosage: UNK
  3. MECLIZINE [Concomitant]
     Dosage: UNK
  4. DECADRON [Concomitant]
     Dosage: UNK
  5. PHENERGAN [Concomitant]
     Dosage: UNK
  6. ESTRACE [Concomitant]
     Dosage: UNK
     Route: 067
  7. BEPOTASTINE [Concomitant]
     Dosage: UNK
  8. NEXIUM [Concomitant]
     Dosage: UNK
  9. PROPYLENE GLYCOL [Concomitant]
     Dosage: UNK
  10. SINGULAIR [Concomitant]
     Dosage: UNK
  11. IBUPROFEN [Concomitant]
     Dosage: UNK
  12. FLECTOR [Suspect]
     Indication: ARTHRALGIA
     Dosage: UNK PATCH, SINGLE
     Route: 061
     Dates: start: 20101201
  13. DARVOCET [Concomitant]
     Dosage: UNK
  14. ZOFRAN [Concomitant]
     Dosage: UNK
  15. FLONASE [Concomitant]
     Dosage: UNK
  16. MAXALT [Concomitant]
     Dosage: UNK
  17. BENADRYL [Concomitant]
     Dosage: UNK
  18. CLARINEX [Concomitant]
     Dosage: UNK
  19. FLEXERIL [Concomitant]
     Dosage: UNK
  20. FLECTOR [Suspect]
     Dosage: 1/2 A PATCH
     Route: 061
     Dates: start: 20110208, end: 20110208
  21. MACROBID [Concomitant]
     Dosage: UNK

REACTIONS (7)
  - THROAT IRRITATION [None]
  - DRUG INEFFECTIVE [None]
  - DYSGEUSIA [None]
  - RASH [None]
  - HYPERSENSITIVITY [None]
  - ERYTHEMA [None]
  - PRURITUS [None]
